FAERS Safety Report 4278118-6 (Version None)
Quarter: 2004Q1

REPORT INFORMATION
  Report Type: 
  Country: None (occurrence: None)
  Receive Date: 20040123
  Receipt Date: 20030130
  Transmission Date: 20041129
  Serious: Yes (Disabling, Other)
  Sender: FDA-Public Use
  Company Number: WAES 0301USA03186

PATIENT
  Age: 51 Year
  Sex: Male
  Weight: 76 kg

DRUGS (4)
  1. VIOXX [Suspect]
     Indication: INTERVERTEBRAL DISC PROTRUSION
     Route: 048
     Dates: start: 20001213, end: 20010101
  2. VIOXX [Suspect]
     Route: 048
     Dates: start: 20010101, end: 20010101
  3. VIOXX [Suspect]
     Indication: ROAD TRAFFIC ACCIDENT
     Route: 048
     Dates: start: 20001213, end: 20010101
  4. VIOXX [Suspect]
     Route: 048
     Dates: start: 20010101, end: 20010101

REACTIONS (11)
  - ABDOMINAL PAIN UPPER [None]
  - ADVERSE EVENT [None]
  - CHOLELITHIASIS [None]
  - DEPRESSION [None]
  - EMOTIONAL DISORDER [None]
  - GALLBLADDER DISORDER [None]
  - GASTRIC DISORDER [None]
  - INJURY [None]
  - NERVOUSNESS [None]
  - ULCER HAEMORRHAGE [None]
  - WEIGHT GAIN POOR [None]
